FAERS Safety Report 20596078 (Version 1)
Quarter: 2022Q1

REPORT INFORMATION
  Report Type: Spontaneous
  Country: US (occurrence: US)
  Receive Date: 20220315
  Receipt Date: 20220315
  Transmission Date: 20220424
  Serious: Yes (Hospitalization, Other)
  Sender: FDA-Public Use
  Company Number: US-TAKEDA-2022TUS016210

PATIENT
  Sex: Female
  Weight: 54 kg

DRUGS (4)
  1. MOTEGRITY [Suspect]
     Active Substance: PRUCALOPRIDE SUCCINATE
     Indication: Bladder catheterisation
     Dosage: 2 MILLIGRAM
     Route: 048
  2. LINZESS [Concomitant]
     Active Substance: LINACLOTIDE
  3. NORFLEX [Concomitant]
     Active Substance: ORPHENADRINE CITRATE
  4. CITALOPRAM [Concomitant]
     Active Substance: CITALOPRAM HYDROBROMIDE

REACTIONS (1)
  - Ileus [Unknown]
